FAERS Safety Report 6471320-4 (Version None)
Quarter: 2009Q4

REPORT INFORMATION
  Report Type: 
  Country: None (occurrence: None)
  Receive Date: 20091203
  Receipt Date: 20080416
  Transmission Date: 20100525
  Serious: Yes (Hospitalization)
  Sender: FDA-Public Use
  Company Number: JP-ELI_LILLY_AND_COMPANY-JP200801006429

PATIENT
  Weight: 2.7 kg

DRUGS (5)
  1. ZYPREXA [Suspect]
     Indication: DEPRESSION
     Dosage: 1.75 MG, DAILY (1/D)
     Route: 064
     Dates: end: 20080117
  2. ZOLOFT [Concomitant]
     Indication: DEPRESSION
     Dosage: 150 MG, 3/D
     Route: 064
     Dates: end: 20080117
  3. WINTERMIN [Concomitant]
     Indication: DEPRESSION
     Dosage: 50 MG, DAILY (1/D)
     Route: 064
     Dates: end: 20080117
  4. HIBERNA [Concomitant]
     Indication: DEPRESSION
     Dosage: 150 MG, DAILY (1/D)
     Route: 064
     Dates: end: 20080117
  5. CERCINE [Concomitant]
     Indication: PANIC ATTACK
     Dosage: 10 MG, DAILY (1/D)
     Route: 064
     Dates: start: 20080101, end: 20080116

REACTIONS (5)
  - DRUG EXPOSURE DURING PREGNANCY [None]
  - DRUG WITHDRAWAL SYNDROME NEONATAL [None]
  - HYPOTONIA NEONATAL [None]
  - PREMATURE BABY [None]
  - SLUGGISHNESS [None]
